FAERS Safety Report 6246662-8 (Version None)
Quarter: 2009Q2

REPORT INFORMATION
  Report Type: 
  Country: None (occurrence: None)
  Receive Date: 20090624
  Receipt Date: 20090624
  Transmission Date: 20091009
  Serious: Yes (Hospitalization)
  Sender: FDA-Public Use
  Company Number: None

PATIENT
  Age: 43 Year
  Sex: Male
  Weight: 107 kg

DRUGS (1)
  1. PRIMAXIN [Suspect]
     Indication: COLON OPERATION
     Dosage: 500 MG Q6H IV
     Route: 042
     Dates: start: 20090620, end: 20090621

REACTIONS (1)
  - RASH [None]
